FAERS Safety Report 21360385 (Version 2)
Quarter: 2022Q4

REPORT INFORMATION
  Report Type: Spontaneous
  Country: JP (occurrence: JP)
  Receive Date: 20220921
  Receipt Date: 20221017
  Transmission Date: 20230113
  Serious: Yes (Other)
  Sender: FDA-Public Use
  Company Number: JP-MYLANLABS-2022M1095367

PATIENT
  Age: 17 Year
  Sex: Female

DRUGS (2)
  1. CALONAL [Suspect]
     Active Substance: ACETAMINOPHEN
     Indication: Erythromelalgia
     Dosage: 2000 MILLIGRAM, QD
     Route: 065
  2. CALONAL [Suspect]
     Active Substance: ACETAMINOPHEN
     Indication: Pain

REACTIONS (1)
  - Drug ineffective [Unknown]
